FAERS Safety Report 10207610 (Version 1)
Quarter: 2014Q2

REPORT INFORMATION
  Report Type: Spontaneous
  Country: US (occurrence: US)
  Receive Date: 20140530
  Receipt Date: 20140530
  Transmission Date: 20141212
  Serious: No
  Sender: FDA-Public Use
  Company Number: US-GLAXOSMITHKLINE-A1051866A

PATIENT
  Age: 55 Year
  Sex: Female

DRUGS (11)
  1. VENTOLIN [Suspect]
     Indication: ASTHMA
     Dosage: 2PUFF FOUR TIMES PER DAY
     Route: 055
     Dates: start: 20131119, end: 20131126
  2. COREG CR [Concomitant]
  3. ALLOPURINOL [Concomitant]
  4. EFFEXOR [Concomitant]
  5. LISINOPRIL + HYDROCHLOROTHIAZIDE [Concomitant]
  6. TRICOR [Concomitant]
  7. GABAPENTIN [Concomitant]
  8. B COMPLEX [Concomitant]
  9. CALCIUM [Concomitant]
  10. ASPIRIN [Concomitant]
  11. VITAMIN D [Concomitant]

REACTIONS (3)
  - Stomatitis [Recovering/Resolving]
  - Tongue ulceration [Unknown]
  - Glossodynia [Unknown]
